FAERS Safety Report 5087352-7 (Version None)
Quarter: 2006Q3

REPORT INFORMATION
  Report Type: 
  Country: None (occurrence: None)
  Receive Date: 20060821
  Receipt Date: 20060808
  Transmission Date: 20061208
  Serious: Yes (Other)
  Sender: FDA-Public Use
  Company Number: FRWYE588208AUG06

PATIENT
  Age: 47 Year
  Sex: Female

DRUGS (3)
  1. EFFEXOR XR [Suspect]
     Dosage: 75 MG TOTAL DAILY ORAL
     Route: 048
     Dates: start: 20060703
  2. BETOPTIC [Concomitant]
  3. AMLODIPINE BESYLATE [Concomitant]

REACTIONS (6)
  - ALOPECIA [None]
  - CONDITION AGGRAVATED [None]
  - HYPERTENSION [None]
  - MADAROSIS [None]
  - MYDRIASIS [None]
  - OCULAR HYPERTENSION [None]
